FAERS Safety Report 4308779-4 (Version None)
Quarter: 2004Q1

REPORT INFORMATION
  Report Type: 
  Country: None (occurrence: None)
  Receive Date: 20040227
  Receipt Date: 20040217
  Transmission Date: 20041129
  Serious: Yes (Other)
  Sender: FDA-Public Use
  Company Number: JP-JNJFOC-20040203875

PATIENT
  Age: 36 Year
  Sex: Female

DRUGS (3)
  1. RISPERDAL [Suspect]
     Indication: DRUG USE FOR UNKNOWN INDICATION
     Dosage: 4 MG, IN 1 DAY, ORAL
     Route: 048
     Dates: start: 20020201
  2. LEVOMEPROMAZINE MALEATE (LEVOMEPROMAZINE MALEATE) [Concomitant]
  3. FLUNITRAZEPAM (FLUNITRAZEPAM) [Concomitant]

REACTIONS (3)
  - FALL [None]
  - FRACTURE [None]
  - LEUKOCYTOSIS [None]
